FAERS Safety Report 17622733 (Version 14)
Quarter: 2025Q1

REPORT INFORMATION
  Report Type: Report from Study
  Country: US (occurrence: US)
  Receive Date: 20200403
  Receipt Date: 20250220
  Transmission Date: 20250409
  Serious: Yes (Hospitalization, Other)
  Sender: TAKEDA
  Company Number: US-SHIRE-US202012246

PATIENT
  Age: 53 Year
  Sex: Female
  Weight: 48 kg

DRUGS (32)
  1. .ALPHA.1-PROTEINASE INHIBITOR HUMAN [Suspect]
     Active Substance: .ALPHA.1-PROTEINASE INHIBITOR HUMAN
     Indication: Alpha-1 antitrypsin deficiency
     Dosage: 4000 MILLIGRAM, 1/WEEK
     Dates: start: 20101027
  2. .ALPHA.1-PROTEINASE INHIBITOR HUMAN [Suspect]
     Active Substance: .ALPHA.1-PROTEINASE INHIBITOR HUMAN
     Dosage: 4000 MILLIGRAM, 1/WEEK
     Dates: start: 20120201
  3. .ALPHA.1-PROTEINASE INHIBITOR HUMAN [Suspect]
     Active Substance: .ALPHA.1-PROTEINASE INHIBITOR HUMAN
     Dosage: 4000 MILLIGRAM, 1/WEEK
     Dates: start: 20130619
  4. .ALPHA.1-PROTEINASE INHIBITOR HUMAN [Suspect]
     Active Substance: .ALPHA.1-PROTEINASE INHIBITOR HUMAN
     Dosage: 4000 MILLIGRAM, 1/WEEK
     Dates: start: 20130801
  5. .ALPHA.1-PROTEINASE INHIBITOR HUMAN [Suspect]
     Active Substance: .ALPHA.1-PROTEINASE INHIBITOR HUMAN
     Dosage: 4000 MILLIGRAM, 1/WEEK
  6. OXYGEN [Concomitant]
     Active Substance: OXYGEN
  7. PSEUDOEPHEDRINE HYDROCHLORIDE [Concomitant]
     Active Substance: PSEUDOEPHEDRINE HYDROCHLORIDE
  8. IBUPROFEN [Concomitant]
     Active Substance: IBUPROFEN
  9. CLINDAMYCIN [Concomitant]
     Active Substance: CLINDAMYCIN
  10. FLONASE SENSIMIST ALLERGY RELIEF [Concomitant]
     Active Substance: FLUTICASONE FUROATE
  11. ALPRAZOLAM [Concomitant]
     Active Substance: ALPRAZOLAM
  12. ZYRTEC [Concomitant]
     Active Substance: CETIRIZINE HYDROCHLORIDE
  13. CLARITIN [Concomitant]
     Active Substance: LORATADINE
  14. DIPHENHYDRAMINE [Concomitant]
     Active Substance: DIPHENHYDRAMINE
  15. HEPARIN [Concomitant]
     Active Substance: HEPARIN SODIUM
  16. LIDOCAINE AND PRILOCAINE [Concomitant]
     Active Substance: LIDOCAINE\PRILOCAINE
  17. SODIUM CHLORIDE [Concomitant]
     Active Substance: SODIUM CHLORIDE
  18. EPINEPHRINE [Concomitant]
     Active Substance: EPINEPHRINE
  19. LEXAPRO [Concomitant]
     Active Substance: ESCITALOPRAM OXALATE
  20. ALBUTEROL SULFATE [Concomitant]
     Active Substance: ALBUTEROL SULFATE
  21. NEXIUM [Concomitant]
     Active Substance: ESOMEPRAZOLE MAGNESIUM
  22. REQUIP XL [Concomitant]
     Active Substance: ROPINIROLE HYDROCHLORIDE
  23. BACLOFEN [Concomitant]
     Active Substance: BACLOFEN
  24. KEPPRA [Concomitant]
     Active Substance: LEVETIRACETAM
  25. SINGULAIR [Concomitant]
     Active Substance: MONTELUKAST SODIUM
  26. ADVAIR HFA [Concomitant]
     Active Substance: FLUTICASONE PROPIONATE\SALMETEROL XINAFOATE
  27. SPIRIVA [Concomitant]
     Active Substance: TIOTROPIUM BROMIDE MONOHYDRATE
  28. SULFAMETHOXAZOLE AND TRIMETHOPRIM [Concomitant]
     Active Substance: SULFAMETHOXAZOLE\TRIMETHOPRIM
  29. ACETAMINOPHEN\HYDROCODONE [Concomitant]
     Active Substance: ACETAMINOPHEN\HYDROCODONE
  30. CLARITHROMYCIN [Concomitant]
     Active Substance: CLARITHROMYCIN
  31. PREDNISONE [Concomitant]
     Active Substance: PREDNISONE
  32. DIPHENHYDRAMINE HYDROCHLORIDE [Concomitant]
     Active Substance: DIPHENHYDRAMINE HYDROCHLORIDE

REACTIONS (21)
  - Post procedural infection [Unknown]
  - Device issue [Unknown]
  - Sinusitis [Unknown]
  - COVID-19 [Unknown]
  - Hypoglycaemia [Unknown]
  - Hypoacusis [Recovered/Resolved]
  - Corneal abrasion [Unknown]
  - Contrast media allergy [Unknown]
  - Procedural pain [Unknown]
  - Respiratory tract congestion [Unknown]
  - Febrile infection [Unknown]
  - Illness [Unknown]
  - Infusion site extravasation [Unknown]
  - Catheter site pain [Unknown]
  - Tachypnoea [Unknown]
  - Panic attack [Unknown]
  - Sinus congestion [Unknown]
  - Product dose omission issue [Unknown]
  - Inappropriate schedule of product administration [Unknown]
  - Flushing [Unknown]
  - Dizziness [Recovered/Resolved]

NARRATIVE: CASE EVENT DATE: 20231113
